FAERS Safety Report 6589648-6 (Version None)
Quarter: 2010Q1

REPORT INFORMATION
  Report Type: 
  Country: None (occurrence: None)
  Receive Date: 20100212
  Receipt Date: 20100208
  Transmission Date: 20100710
  Serious: Yes (Hospitalization)
  Sender: FDA-Public Use
  Company Number: SP02785

PATIENT
  Age: 51 Year
  Sex: Female
  Weight: 92.5338 kg

DRUGS (1)
  1. BALSALAZIDE DISODIUM (750 MILLIGRAM, CAPSULES) [Suspect]
     Indication: CROHN'S DISEASE
     Dosage: 4500 MG (1500 MG, 3 IN 1 D), ORAL
     Route: 048
     Dates: start: 20091231, end: 20100110

REACTIONS (3)
  - ATRIOVENTRICULAR BLOCK COMPLETE [None]
  - DYSPNOEA [None]
  - HYPERHIDROSIS [None]
